FAERS Safety Report 8544332-4 (Version None)
Quarter: 2012Q3

REPORT INFORMATION
  Report Type: 
  Country: None (occurrence: None)
  Receive Date: 20120719
  Receipt Date: 20120719
  Transmission Date: 20120928
  Serious: Yes (Other)
  Sender: FDA-Public Use
  Company Number: None

PATIENT
  Sex: Female

DRUGS (4)
  1. TRAMADOL HYDROCHLORIDE [Concomitant]
  2. OMEPRAZOLE [Concomitant]
  3. NAPROXEN [Concomitant]
  4. CYCLOBENZAPRINE [Suspect]
     Indication: NECK PAIN
     Dosage: 7.5MG TWICE A DAY PO
     Route: 048

REACTIONS (1)
  - HYPERSENSITIVITY [None]
